FAERS Safety Report 7837097-2 (Version None)
Quarter: 2011Q4

REPORT INFORMATION
  Report Type: 
  Country: None (occurrence: None)
  Receive Date: 20111024
  Receipt Date: 20110304
  Transmission Date: 20120403
  Serious: No
  Sender: FDA-Public Use
  Company Number: US-ABBOTT-11P-163-0709586-00

PATIENT
  Sex: Female
  Weight: 53.118 kg

DRUGS (4)
  1. LORTAB [Concomitant]
     Indication: PRODUCT USED FOR UNKNOWN INDICATION
  2. NORETHINDRONE [Concomitant]
     Indication: PRODUCT USED FOR UNKNOWN INDICATION
  3. ELAVIL [Concomitant]
     Indication: PRODUCT USED FOR UNKNOWN INDICATION
  4. LUPRON DEPOT [Suspect]
     Indication: ENDOMETRIOSIS
     Dates: start: 20110101

REACTIONS (4)
  - HOT FLUSH [None]
  - DRUG INEFFECTIVE [None]
  - PAIN [None]
  - METRORRHAGIA [None]
